FAERS Safety Report 8815306 (Version 2)
Quarter: 2012Q4

REPORT INFORMATION
  Report Type: 
  Country: FR (occurrence: FR)
  Receive Date: 20120928
  Receipt Date: 20121005
  Transmission Date: 20130627
  Serious: Yes (Death, Hospitalization)
  Sender: FDA-Public Use
  Company Number: FR-B.I. PHARMACEUTICALS,INC./RIDGEFIELD-2012-FF-01347FF

PATIENT
  Age: 79 None
  Sex: Female

DRUGS (12)
  1. PRADAXA [Suspect]
     Dosage: 220 mg
     Route: 048
  2. XARELTO [Suspect]
     Dosage: 10 mg
     Route: 048
  3. LOVENOX [Suspect]
     Indication: THROMBOSIS PROPHYLAXIS
     Dates: start: 20120917, end: 20120918
  4. INEXIUM [Concomitant]
     Dosage: 20 mg
  5. FOSAMAX [Concomitant]
  6. CORDARONE [Concomitant]
  7. BISOPROLOL [Concomitant]
     Dosage: 2.5 mg
  8. DEROXAT [Concomitant]
  9. HYDROCORTISONE [Concomitant]
     Dosage: 30 mg
  10. LEVOTHYROX [Concomitant]
     Dosage: 50 mcg
  11. MOTILIUM [Concomitant]
  12. DIFFU K [Concomitant]

REACTIONS (3)
  - Gastrointestinal haemorrhage [Fatal]
  - Femoral neck fracture [Unknown]
  - Gastrointestinal haemorrhage [Recovered/Resolved]
